FAERS Safety Report 4474613-5 (Version None)
Quarter: 2004Q4

REPORT INFORMATION
  Report Type: 
  Country: None (occurrence: None)
  Receive Date: 20041008
  Receipt Date: 20040922
  Transmission Date: 20050328
  Serious: Yes (Hospitalization)
  Sender: FDA-Public Use
  Company Number: JP_040904608

PATIENT
  Age: 68 Year
  Sex: Female

DRUGS (5)
  1. ZYPREXA [Suspect]
     Indication: SCHIZOPHRENIA
     Dosage: 20 MG DAY
     Dates: start: 20040401
  2. DOGMATYL *SULPIRIDE) [Concomitant]
  3. SENIRAN (BROMAZEPAM) [Concomitant]
  4. HALCION [Concomitant]
  5. LACK B (LACTOBACILLUS BIFIDUS, LYOPHILIZED) [Concomitant]

REACTIONS (1)
  - PANCYTOPENIA [None]
